FAERS Safety Report 5832724-3 (Version None)
Quarter: 2008Q3

REPORT INFORMATION
  Report Type: 
  Country: None (occurrence: None)
  Receive Date: 20080804
  Receipt Date: 20080725
  Transmission Date: 20090109
  Serious: Yes (Hospitalization, Other)
  Sender: FDA-Public Use
  Company Number: PHHY2008FR15829

PATIENT
  Sex: Male

DRUGS (8)
  1. SANDIMMUNE [Suspect]
     Indication: RENAL TRANSPLANT
     Dosage: 75 MG, BID
     Route: 048
     Dates: start: 19910101, end: 20080609
  2. CELLCEPT [Suspect]
     Indication: RENAL TRANSPLANT
     Dosage: 500 MG
     Route: 048
     Dates: start: 19980101, end: 20080526
  3. CORTANCYL [Suspect]
     Indication: RENAL TRANSPLANT
     Dosage: 5 MG, QD
     Route: 048
     Dates: start: 19910101
  4. ATACAND [Concomitant]
     Dosage: 8 MG SCORED TABLET
     Route: 048
  5. BISOPROLOL FUMARATE [Concomitant]
     Dosage: 5 MG COATED SCORED TABLET
     Route: 048
  6. PREVISCAN [Concomitant]
     Route: 048
  7. HEMIGOXINE [Concomitant]
     Route: 048
  8. TAHOR [Concomitant]
     Dosage: 20 MG COATED TABLET
     Route: 048

REACTIONS (10)
  - ATRIAL FIBRILLATION [None]
  - BACTERIAL INFECTION [None]
  - BLOOD CULTURE POSITIVE [None]
  - CHOLECYSTECTOMY [None]
  - COUGH [None]
  - DYSPNOEA [None]
  - HAEMOPTYSIS [None]
  - PNEUMONIA BACTERIAL [None]
  - PSEUDOMONAS INFECTION [None]
  - PYREXIA [None]
